FAERS Safety Report 10683567 (Version 3)
Quarter: 2015Q1

REPORT INFORMATION
  Report Type: Spontaneous
  Country: US (occurrence: US)
  Receive Date: 20141230
  Receipt Date: 20150206
  Transmission Date: 20150720
  Serious: No
  Sender: FDA-Public Use
  Company Number: US-GLAXOSMITHKLINE-US2014GSK035370

PATIENT
  Sex: Male

DRUGS (7)
  1. JALYN [Suspect]
     Active Substance: DUTASTERIDE\TAMSULOSIN HYDROCHLORIDE
     Indication: URINARY TRACT OBSTRUCTION
  2. LISINOPRIL. [Concomitant]
     Active Substance: LISINOPRIL
  3. JALYN [Suspect]
     Active Substance: DUTASTERIDE\TAMSULOSIN HYDROCHLORIDE
     Indication: BENIGN PROSTATIC HYPERPLASIA
     Dosage: UNK
     Route: 048
     Dates: start: 20140717
  4. LOVASTATIN. [Concomitant]
     Active Substance: LOVASTATIN
  5. CQ 10 [Concomitant]
  6. EFFIENT [Concomitant]
     Active Substance: PRASUGREL HYDROCHLORIDE
  7. OMEPRAZOLE. [Concomitant]
     Active Substance: OMEPRAZOLE

REACTIONS (3)
  - Medication residue present [Unknown]
  - Product quality issue [Unknown]
  - Anorectal discomfort [Unknown]
